FAERS Safety Report 10403146 (Version 1)
Quarter: 2014Q3

REPORT INFORMATION
  Report Type: Spontaneous
  Country: CA (occurrence: CA)
  Receive Date: 20140822
  Receipt Date: 20140822
  Transmission Date: 20150326
  Serious: Yes (Hospitalization)
  Sender: FDA-Public Use
  Company Number: CA-GLAXOSMITHKLINE-A1084921A

PATIENT
  Sex: Male

DRUGS (3)
  1. TAFINLAR [Suspect]
     Active Substance: DABRAFENIB MESYLATE
     Indication: METASTATIC MALIGNANT MELANOMA
     Dosage: 300MG PER DAY
     Route: 065
  2. MORPHINE [Concomitant]
     Active Substance: MORPHINE
  3. DIABETES MEDICATION [Concomitant]
     Active Substance: UNSPECIFIED INGREDIENT
     Indication: DIABETES MELLITUS

REACTIONS (6)
  - Musculoskeletal stiffness [Unknown]
  - Disorientation [Unknown]
  - Dizziness [Recovered/Resolved]
  - Paralysis [Unknown]
  - Nausea [Recovered/Resolved]
  - Hepatic enzyme increased [Unknown]
